FAERS Safety Report 25341553 (Version 1)
Quarter: 2025Q2

REPORT INFORMATION
  Report Type: Spontaneous
  Country: US (occurrence: US)
  Receive Date: 20250521
  Receipt Date: 20250521
  Transmission Date: 20250716
  Serious: No
  Sender: BRISTOL-MYERS SQUIBB COMPANY
  Company Number: US-BRISTOL-MYERS SQUIBB COMPANY-2025-069925

PATIENT
  Age: 57 Year
  Sex: Female

DRUGS (4)
  1. ORENCIA [Suspect]
     Active Substance: ABATACEPT
     Indication: Rheumatoid arthritis
     Route: 058
     Dates: start: 202409
  2. CEFDINIR [Suspect]
     Active Substance: CEFDINIR
     Indication: Product used for unknown indication
  3. FILSPARI [Concomitant]
     Active Substance: SPARSENTAN
     Indication: Blood immunoglobulin A
  4. FILSPARI [Concomitant]
     Active Substance: SPARSENTAN
     Indication: Nephropathy

REACTIONS (1)
  - Peripheral swelling [Unknown]
